FAERS Safety Report 9173245 (Version 9)
Quarter: 2013Q4

REPORT INFORMATION
  Report Type: Spontaneous
  Country: US (occurrence: US)
  Receive Date: 20130320
  Receipt Date: 20131031
  Transmission Date: 20140711
  Serious: No
  Sender: FDA-Public Use
  Company Number: US-009507513-1303USA006456

PATIENT
  Age: 66 Year
  Sex: Female

DRUGS (10)
  1. PEGINTRON [Suspect]
     Indication: HEPATITIS C
     Dosage: UNK
  2. VICTRELIS [Suspect]
     Indication: HEPATITIS C
     Dosage: UNK
     Route: 048
     Dates: end: 20130708
  3. REBETOL [Suspect]
     Indication: HEPATITIS C
     Dosage: 1200 MG/DAY
     Route: 048
  4. PEGASYS [Suspect]
     Indication: HEPATITIS C
     Dosage: 180 MICROGRAM, QW
     Route: 058
     Dates: start: 20121024, end: 20130918
  5. RIBASPHERE [Suspect]
     Indication: HEPATITIS C
     Dosage: 1200 MG, DAILY DIVIDED DOSES
     Route: 048
     Dates: start: 20121024
  6. RIBASPHERE [Suspect]
     Dosage: 800 MG DAILY DIVIDED DOSES
     Route: 048
     Dates: start: 20130213
  7. RIBASPHERE [Suspect]
     Dosage: 1200 MG DAILY DIVIDED DOSE
     Route: 048
  8. RIBASPHERE [Suspect]
     Dosage: 600 MG DAILY, DIVIDED DOSE
     Route: 048
  9. RIBASPHERE [Suspect]
     Dosage: 800 MG DAILY
     Route: 048
  10. RIBASPHERE [Suspect]
     Dosage: 1000MG, DAILY, DIVIDED DOSE
     Route: 048
     Dates: end: 20130918

REACTIONS (23)
  - Dysgeusia [Not Recovered/Not Resolved]
  - Nausea [Not Recovered/Not Resolved]
  - Fatigue [Not Recovered/Not Resolved]
  - Contusion [Unknown]
  - Dysgeusia [Unknown]
  - Anaemia [Not Recovered/Not Resolved]
  - Pain in extremity [Unknown]
  - Rash [Unknown]
  - Fungal infection [Unknown]
  - Memory impairment [Unknown]
  - Rash erythematous [Unknown]
  - Burning sensation [Unknown]
  - Rash pruritic [Unknown]
  - Depression [Recovered/Resolved]
  - Somnolence [Unknown]
  - Diarrhoea [Not Recovered/Not Resolved]
  - Weight decreased [Unknown]
  - Oropharyngeal pain [Unknown]
  - Fatigue [Unknown]
  - Dizziness [Unknown]
  - Headache [Unknown]
  - Pruritus [Unknown]
  - Haemoglobin decreased [Unknown]
